FAERS Safety Report 6564207-X (Version None)
Quarter: 2010Q1

REPORT INFORMATION
  Report Type: 
  Country: None (occurrence: None)
  Receive Date: 20100201
  Receipt Date: 20100127
  Transmission Date: 20100710
  Serious: Yes (Hospitalization, Other)
  Sender: FDA-Public Use
  Company Number: US-ASTRAZENECA-2007UW08594

PATIENT
  Age: 686 Month
  Sex: Male
  Weight: 83.9 kg

DRUGS (4)
  1. SEROQUEL [Suspect]
     Indication: SLEEP DISORDER
     Route: 048
     Dates: start: 19980101, end: 20070101
  2. SEROQUEL [Suspect]
     Indication: ANXIETY
     Route: 048
     Dates: start: 19980101, end: 20070101
  3. HALDOL [Concomitant]
  4. VYTORIN [Concomitant]
     Dosage: 10/20 MG ONE A DAY
     Dates: start: 20070604

REACTIONS (6)
  - ANKLE FRACTURE [None]
  - DIABETES MELLITUS [None]
  - DIABETIC NEUROPATHY [None]
  - FOOT FRACTURE [None]
  - INSULIN-REQUIRING TYPE 2 DIABETES MELLITUS [None]
  - TYPE 2 DIABETES MELLITUS [None]
